FAERS Safety Report 18040967 (Version 2)
Quarter: 2022Q1

REPORT INFORMATION
  Report Type: Spontaneous
  Country: CA (occurrence: CA)
  Receive Date: 20200717
  Receipt Date: 20220321
  Transmission Date: 20220423
  Serious: Yes (Other)
  Sender: FDA-Public Use
  Company Number: CA-AUROBINDO-AUR-APL-2020-034527

PATIENT
  Age: 65 Year
  Sex: Female

DRUGS (16)
  1. LAMOTRIGINE [Suspect]
     Active Substance: LAMOTRIGINE
     Indication: Bipolar I disorder
     Dosage: 50 MILLIGRAM
     Route: 065
  2. LAMOTRIGINE [Suspect]
     Active Substance: LAMOTRIGINE
     Indication: Bipolar I disorder
     Dosage: UNK
     Route: 065
  3. LAMOTRIGINE [Suspect]
     Active Substance: LAMOTRIGINE
     Indication: Anxiety disorder
     Dosage: 50 MILLIGRAM
     Route: 065
  4. PANTOPRAZOLE [Suspect]
     Active Substance: PANTOPRAZOLE
     Indication: Dyspepsia
     Dosage: UNK
     Route: 065
  5. QUETIAPINE [Suspect]
     Active Substance: QUETIAPINE
     Indication: Bipolar I disorder
     Dosage: 350 MILLIGRAM
     Route: 065
  6. QUETIAPINE [Suspect]
     Active Substance: QUETIAPINE
     Indication: Anxiety disorder
  7. QUETIAPINE [Suspect]
     Active Substance: QUETIAPINE
     Indication: Bipolar I disorder
     Dosage: UNK
     Route: 065
  8. QUETIAPINE [Suspect]
     Active Substance: QUETIAPINE
     Indication: Anxiety disorder
     Dosage: 350 MILLIGRAM
     Route: 065
  9. PANTOPRAZOLE SODIUM [Suspect]
     Active Substance: PANTOPRAZOLE SODIUM
     Indication: Dyspepsia
     Dosage: UNK
     Route: 065
  10. CLONAZEPAM [Concomitant]
     Active Substance: CLONAZEPAM
     Indication: Product used for unknown indication
     Dosage: 2.25 MILLIGRAM
     Route: 065
  11. CLONAZEPAM [Concomitant]
     Active Substance: CLONAZEPAM
     Indication: Product used for unknown indication
     Dosage: 2.25 MILLIGRAM, ONCE A DAY
     Route: 065
  12. MOCLOBEMIDE [Concomitant]
     Active Substance: MOCLOBEMIDE
     Indication: Product used for unknown indication
     Dosage: UNK
     Route: 065
  13. MOCLOBEMIDE [Concomitant]
     Active Substance: MOCLOBEMIDE
     Indication: Product used for unknown indication
     Dosage: UNK
     Route: 065
  14. PROPRANOLOL [Concomitant]
     Active Substance: PROPRANOLOL HYDROCHLORIDE
     Indication: Product used for unknown indication
     Dosage: UNK
     Route: 065
  15. VALPROIC ACID [Concomitant]
     Active Substance: VALPROIC ACID
     Indication: Product used for unknown indication
     Dosage: 750 MILLIGRAM
     Route: 065
  16. DIVALPROEX SODIUM [Concomitant]
     Active Substance: DIVALPROEX SODIUM
     Indication: Product used for unknown indication
     Dosage: 3 MILLIGRAM
     Route: 065

REACTIONS (6)
  - Psychotic disorder [Unknown]
  - Blepharospasm [Unknown]
  - Balance disorder [Unknown]
  - Mass [Unknown]
  - Quality of life decreased [Unknown]
  - Drug ineffective [Unknown]
